FAERS Safety Report 9298754 (Version 2)
Quarter: 2014Q2

REPORT INFORMATION
  Report Type: Spontaneous
  Country: US (occurrence: US)
  Receive Date: 20130520
  Receipt Date: 20140520
  Transmission Date: 20141212
  Serious: Yes (Other)
  Sender: FDA-Public Use
  Company Number: US-GLAXOSMITHKLINE-A1023905A

PATIENT
  Sex: Male

DRUGS (2)
  1. LAMICTAL [Suspect]
     Indication: PRODUCT USED FOR UNKNOWN INDICATION
     Route: 065
  2. LAMICTAL XR [Suspect]
     Indication: CONVULSION
     Dosage: 100MG PER DAY
     Route: 065
     Dates: start: 20130615

REACTIONS (3)
  - Brain neoplasm [Unknown]
  - Personality change [Unknown]
  - Palpitations [Unknown]
